FAERS Safety Report 10647198 (Version 3)
Quarter: 2015Q1

REPORT INFORMATION
  Report Type: Spontaneous
  Country: US (occurrence: US)
  Receive Date: 20141211
  Receipt Date: 20150312
  Transmission Date: 20150720
  Serious: No
  Sender: FDA-Public Use
  Company Number: US-INCYTE CORPORATION-2014IN003182

PATIENT
  Age: 63 Year
  Sex: Male

DRUGS (4)
  1. ASPIRIN. [Concomitant]
     Active Substance: ASPIRIN
  2. FENOFIBRATE. [Concomitant]
     Active Substance: FENOFIBRATE
  3. LIVALO [Concomitant]
     Active Substance: PITAVASTATIN CALCIUM
  4. JAKAFI [Suspect]
     Active Substance: RUXOLITINIB
     Dosage: 5 MG, BID
     Route: 048
     Dates: start: 20141022

REACTIONS (4)
  - Dysgeusia [Unknown]
  - Epistaxis [Not Recovered/Not Resolved]
  - Headache [Unknown]
  - Blister [Not Recovered/Not Resolved]

NARRATIVE: CASE EVENT DATE: 20141023
